FAERS Safety Report 15858198 (Version 1)
Quarter: 2018Q4

REPORT INFORMATION
  Report Type: Spontaneous
  Country: US (occurrence: US)
  Receive Date: 20181228
  Receipt Date: 20181228
  Transmission Date: 20190205
  Serious: No
  Sender: FDA-Public Use
  Company Number: None

PATIENT
  Age: 55 Year
  Sex: Male
  Weight: 64.41 kg

DRUGS (1)
  1. VARDENAFIL 20 MG [Suspect]
     Active Substance: VARDENAFIL
     Indication: ERECTILE DYSFUNCTION
     Dates: start: 20181101

REACTIONS (4)
  - Therapeutic response changed [None]
  - Product substitution issue [None]
  - Headache [None]
  - Treatment failure [None]

NARRATIVE: CASE EVENT DATE: 20181101
